FAERS Safety Report 5401929-8 (Version None)
Quarter: 2007Q3

REPORT INFORMATION
  Report Type: 
  Country: None (occurrence: None)
  Receive Date: 20070726
  Receipt Date: 20070710
  Transmission Date: 20080115
  Serious: Yes (Other)
  Sender: FDA-Public Use
  Company Number: 2007BM000077

PATIENT
  Age: 19 Year
  Sex: Female

DRUGS (3)
  1. PREDNISOLONE [Suspect]
     Indication: POLYMYOSITIS
  2. AZATHIOPRINE [Suspect]
     Indication: POLYMYOSITIS
  3. ORAPRED [Suspect]

REACTIONS (4)
  - IMMUNOSUPPRESSION [None]
  - MENINGITIS CRYPTOCOCCAL [None]
  - PAPILLOEDEMA [None]
  - PNEUMONIA CRYPTOCOCCAL [None]
